APPROVED DRUG PRODUCT: DEXMETHYLPHENIDATE HYDROCHLORIDE
Active Ingredient: DEXMETHYLPHENIDATE HYDROCHLORIDE
Strength: 10MG
Dosage Form/Route: CAPSULE, EXTENDED RELEASE;ORAL
Application: A078908 | Product #002 | TE Code: AB
Applicant: TEVA PHARMACEUTICALS USA
Approved: Nov 19, 2013 | RLD: No | RS: No | Type: RX